FAERS Safety Report 23875386 (Version 1)
Quarter: 2024Q2

REPORT INFORMATION
  Report Type: Spontaneous
  Country: US (occurrence: None)
  Receive Date: 20240520
  Receipt Date: 20240520
  Transmission Date: 20240715
  Serious: Yes (Other)
  Sender: FDA-Public Use
  Company Number: None

PATIENT
  Age: 87 Year
  Sex: Female

DRUGS (9)
  1. PROLIA [Suspect]
     Active Substance: DENOSUMAB
     Indication: Senile osteoporosis
     Dosage: OTHER QUANTITY : INJECT 1 SYRINGE;?OTHER FREQUENCY : EVERY 6 MONTHS;?
     Route: 058
     Dates: start: 20211102
  2. ASPIRIN [Concomitant]
     Active Substance: ASPIRIN
  3. ATENOLOL [Concomitant]
     Active Substance: ATENOLOL
  4. METHYLCOBALAMIN [Concomitant]
     Active Substance: METHYLCOBALAMIN
  5. BIOTIN [Concomitant]
     Active Substance: BIOTIN
  6. CALC/MAGNES [Concomitant]
  7. LISINOPRIL [Concomitant]
     Active Substance: LISINOPRIL
  8. PRAVASTATIN [Concomitant]
     Active Substance: PRAVASTATIN
  9. THERA-D [Concomitant]

REACTIONS (3)
  - Cerebrovascular accident [None]
  - Dementia [None]
  - Therapy cessation [None]

NARRATIVE: CASE EVENT DATE: 20240309
